FAERS Safety Report 15138804 (Version 1)
Quarter: 2018Q3

REPORT INFORMATION
  Report Type: Spontaneous
  Country: US (occurrence: US)
  Receive Date: 20180713
  Receipt Date: 20180713
  Transmission Date: 20181010
  Serious: No
  Sender: FDA-Public Use
  Company Number: US-AMGEN-USASP2018093634

PATIENT
  Age: 68 Year
  Sex: Female

DRUGS (3)
  1. METHOTREXATE. [Concomitant]
     Active Substance: METHOTREXATE
     Dosage: UNK
  2. ENBREL [Suspect]
     Active Substance: ETANERCEPT
     Indication: RHEUMATOID ARTHRITIS
     Dosage: 25 MG, 3 TIMES/WK
     Route: 065
     Dates: end: 2016
  3. ENBREL [Suspect]
     Active Substance: ETANERCEPT
     Dosage: 25 MG, 3 TIMES/WK
     Route: 065
     Dates: start: 201702

REACTIONS (2)
  - Intentional product misuse [Unknown]
  - Herpes zoster [Recovered/Resolved]

NARRATIVE: CASE EVENT DATE: 201608
